FAERS Safety Report 11457010 (Version 1)
Quarter: 2015Q3

REPORT INFORMATION
  Report Type: Report from Study
  Country: NL (occurrence: NL)
  Receive Date: 20150904
  Receipt Date: 20150904
  Transmission Date: 20151125
  Serious: Yes (Hospitalization)
  Sender: FDA-Public Use
  Company Number: NL-ROCHE-1629099

PATIENT
  Age: 41 Year
  Sex: Female

DRUGS (6)
  1. CISPLATIN. [Suspect]
     Active Substance: CISPLATIN
     Indication: GASTRIC CANCER
     Dosage: ON 24/NOV/2014 LAST DOSE WAS TAKEN
     Route: 042
     Dates: start: 20141124
  2. XYZAL [Concomitant]
     Active Substance: LEVOCETIRIZINE DIHYDROCHLORIDE
     Route: 065
     Dates: start: 20141130
  3. CAPECITABINE. [Suspect]
     Active Substance: CAPECITABINE
     Indication: GASTRIC CANCER
     Dosage: ON 07/DEC/2014 LAST DOSE WAS TAKEN
     Route: 048
     Dates: start: 20141124
  4. DERMOVATE CREAM [Concomitant]
     Dosage: 2 DD FT DAILY
     Route: 065
     Dates: start: 20141130, end: 20141202
  5. TAVEGIL [Concomitant]
     Active Substance: CLEMASTINE FUMARATE
     Route: 042
     Dates: start: 20141129, end: 20141129
  6. EPIRUBICINE [Suspect]
     Active Substance: EPIRUBICIN
     Indication: GASTRIC CANCER
     Dosage: ON 24/NOV/2014 LAST DOSE WAS TAKEN
     Route: 042
     Dates: start: 20141124

REACTIONS (2)
  - Rash [Recovered/Resolved]
  - Erythema multiforme [Recovered/Resolved]

NARRATIVE: CASE EVENT DATE: 20141129
